FAERS Safety Report 16100868 (Version 3)
Quarter: 2019Q2

REPORT INFORMATION
  Report Type: Spontaneous
  Country: US (occurrence: US)
  Receive Date: 20190321
  Receipt Date: 20190501
  Transmission Date: 20190711
  Serious: No
  Sender: FDA-Public Use
  Company Number: US-JNJFOC-20190303580

PATIENT
  Age: 53 Year
  Sex: Male

DRUGS (2)
  1. RISPERDAL CONSTA [Suspect]
     Active Substance: RISPERIDONE
     Indication: PRODUCT USED FOR UNKNOWN INDICATION
     Route: 030
     Dates: start: 201506
  2. ADDERALL [Concomitant]
     Active Substance: AMPHETAMINE ASPARTATE\AMPHETAMINE SULFATE\DEXTROAMPHETAMINE SACCHARATE\DEXTROAMPHETAMINE SULFATE
     Indication: ATTENTION DEFICIT/HYPERACTIVITY DISORDER
     Dosage: 15MG + 10MG (SIC)??THERAPY DATES INCLUDED;??02-06-2019??01-07-2019??12-08-2019
     Route: 065

REACTIONS (2)
  - Syringe issue [Unknown]
  - Product dose omission [Unknown]

NARRATIVE: CASE EVENT DATE: 20190222
